FAERS Safety Report 15558688 (Version 7)
Quarter: 2020Q3

REPORT INFORMATION
  Report Type: Report from Study
  Country: DE (occurrence: DE)
  Receive Date: 20181029
  Receipt Date: 20190625
  Transmission Date: 20201104
  Serious: No
  Sender: FDA-Public Use
  Company Number: DE-ROCHE-2200321

PATIENT
  Age: 39 Year
  Sex: Female
  Weight: 53 kg

DRUGS (13)
  1. OCRELIZUMAB. [Suspect]
     Active Substance: OCRELIZUMAB
     Route: 042
     Dates: start: 20181128, end: 20181128
  2. FINGOLIMOD. [Suspect]
     Active Substance: FINGOLIMOD
     Route: 065
     Dates: start: 200706, end: 201001
  3. PARACETAMOL [Concomitant]
     Active Substance: ACETAMINOPHEN
     Indication: PREMEDICATION
     Route: 042
     Dates: start: 20181114, end: 20181128
  4. FENISTIL [Concomitant]
     Active Substance: DIMETHINDENE
     Indication: PREMEDICATION
     Route: 042
     Dates: start: 20181114, end: 20181128
  5. OCRELIZUMAB. [Suspect]
     Active Substance: OCRELIZUMAB
     Route: 042
     Dates: start: 20190528
  6. METHYLPREDNISOLON [METHYLPREDNISOLONE] [Concomitant]
     Active Substance: METHYLPREDNISOLONE
     Indication: PREMEDICATION
     Route: 042
     Dates: start: 20181114, end: 20181128
  7. OCRELIZUMAB. [Suspect]
     Active Substance: OCRELIZUMAB
     Indication: MULTIPLE SCLEROSIS
     Route: 042
     Dates: start: 20180924
  8. LORATADIN [Concomitant]
     Active Substance: LORATADINE
     Dosage: INDICATION:  ALLERGIC SKIN PROCESS AND ALLERGIC MUCOUS MEMBRANE PROCESS
     Route: 048
     Dates: start: 201703
  9. SALBUTAMOL [Concomitant]
     Active Substance: ALBUTEROL
     Indication: ASTHMA
     Route: 039
     Dates: start: 201808
  10. OCRELIZUMAB. [Suspect]
     Active Substance: OCRELIZUMAB
     Route: 042
     Dates: start: 20181114, end: 20181114
  11. FINGOLIMOD. [Suspect]
     Active Substance: FINGOLIMOD
     Indication: MULTIPLE SCLEROSIS
     Dosage: MOST RECENT DOSE WAS RECEIVED ON 24/AUG/2018
     Route: 048
     Dates: start: 20140121
  12. PROPIVERINE [Concomitant]
     Active Substance: PROPIVERINE
     Indication: URGE INCONTINENCE
     Route: 048
     Dates: start: 201709
  13. NATALIZUMAB [Concomitant]
     Active Substance: NATALIZUMAB
     Route: 065
     Dates: start: 201008, end: 201212

REACTIONS (1)
  - Nasopharyngitis [Recovered/Resolved]
